FAERS Safety Report 4677595-6 (Version None)
Quarter: 2005Q2

REPORT INFORMATION
  Report Type: 
  Country: None (occurrence: None)
  Receive Date: 20050526
  Receipt Date: 20050526
  Transmission Date: 20051028
  Serious: Yes (Death, Life-Threatening, Hospitalization)
  Sender: FDA-Public Use
  Company Number: None

PATIENT
  Age: 81 Year
  Sex: Female
  Weight: 49.8957 kg

DRUGS (3)
  1. ZOLOFT [Suspect]
     Indication: DISORIENTATION
     Dosage: 3 X WEEK
     Dates: start: 20021001, end: 20030501
  2. RISPERDAL [Suspect]
     Indication: CONFUSIONAL STATE
     Dosage: 3 DAYS
     Dates: start: 20030919
  3. INTERFERON 2A IV [Suspect]
     Route: 042

REACTIONS (2)
  - AGITATION [None]
  - ANOREXIA [None]
